FAERS Safety Report 25153969 (Version 8)
Quarter: 2025Q3

REPORT INFORMATION
  Report Type: Report from Study
  Country: US (occurrence: US)
  Receive Date: 20250403
  Receipt Date: 20250924
  Transmission Date: 20251020
  Serious: Yes (Other)
  Sender: SUNOVION
  Company Number: US-SUMITOMO PHARMA SWITZERLAND GMBH-2025SPA003370

PATIENT
  Age: 79 Year
  Sex: Male

DRUGS (14)
  1. ORGOVYX [Suspect]
     Active Substance: RELUGOLIX
     Indication: Prostate cancer
     Dosage: 360 MG, SINGLE
     Route: 048
     Dates: start: 20250314, end: 20250314
  2. ORGOVYX [Suspect]
     Active Substance: RELUGOLIX
     Dosage: 120 MG, QD
     Route: 048
     Dates: start: 20250315
  3. AVODART [Concomitant]
     Active Substance: DUTASTERIDE
  4. BENICAR [Concomitant]
     Active Substance: OLMESARTAN MEDOXOMIL
  5. ENTECAVIR [Concomitant]
     Active Substance: ENTECAVIR
  6. LATANOPROST [Concomitant]
     Active Substance: LATANOPROST
     Route: 047
  7. LEVOTHYROXINE [Concomitant]
     Active Substance: LEVOTHYROXINE
  8. MIRABEGRON [Concomitant]
     Active Substance: MIRABEGRON
  9. VITAMINS [Concomitant]
     Active Substance: VITAMINS
     Route: 048
  10. NIFEDIPINE [Concomitant]
     Active Substance: NIFEDIPINE
  11. DOCUSATE SODIUM AND SENNA [Concomitant]
     Active Substance: DOCUSATE SODIUM\SENNOSIDES
  12. HYDROCODONE POLISTIREX AND CHLORPHENIRAMINE POLISTIREX [Concomitant]
     Active Substance: CHLORPHENIRAMINE MALEATE\HYDROCODONE BITARTRATE
  13. SENNA [Concomitant]
     Active Substance: SENNOSIDES
  14. BENICAR HCT [Concomitant]
     Active Substance: HYDROCHLOROTHIAZIDE\OLMESARTAN MEDOXOMIL

REACTIONS (14)
  - Urinary retention [Unknown]
  - Incontinence [Unknown]
  - Pollakiuria [Not Recovered/Not Resolved]
  - Nasopharyngitis [Unknown]
  - Nocturia [Unknown]
  - Chills [Unknown]
  - Tremor [Unknown]
  - Night sweats [Not Recovered/Not Resolved]
  - Fatigue [Not Recovered/Not Resolved]
  - Hot flush [Unknown]
  - Hypertension [Unknown]
  - Blood glucose increased [Unknown]
  - Insomnia [Unknown]
  - Pain in extremity [Unknown]
